FAERS Safety Report 5597229-6 (Version None)
Quarter: 2008Q1

REPORT INFORMATION
  Report Type: 
  Country: None (occurrence: None)
  Receive Date: 20080121
  Receipt Date: 20080116
  Transmission Date: 20080703
  Serious: Yes (Death)
  Sender: FDA-Public Use
  Company Number: PHEH2008US00884

PATIENT
  Age: 44 Year
  Sex: Female

DRUGS (1)
  1. TEGRETOL [Suspect]

REACTIONS (2)
  - VOMITING [None]
  - WATER INTOXICATION [None]
